FAERS Safety Report 5639351-1 (Version None)
Quarter: 2008Q1

REPORT INFORMATION
  Report Type: 
  Country: None (occurrence: None)
  Receive Date: 20080226
  Receipt Date: 20080219
  Transmission Date: 20080703
  Serious: Yes (Death, Other)
  Sender: FDA-Public Use
  Company Number: US-PFIZER INC-2007028621

PATIENT
  Sex: Female
  Weight: 73 kg

DRUGS (2)
  1. CELEBREX [Suspect]
     Indication: PAIN
     Dates: start: 20020604, end: 20040528
  2. BEXTRA [Suspect]
     Indication: PAIN
     Dates: start: 20031226, end: 20040125

REACTIONS (1)
  - MYOCARDIAL INFARCTION [None]
